FAERS Safety Report 4745439-X (Version None)
Quarter: 2005Q3

REPORT INFORMATION
  Report Type: 
  Country: None (occurrence: None)
  Receive Date: 20050812
  Receipt Date: 20050810
  Transmission Date: 20060218
  Serious: Yes (Hospitalization)
  Sender: FDA-Public Use
  Company Number: 214681

PATIENT
  Age: 64 Year
  Sex: Female
  Weight: 88.9 kg

DRUGS (1)
  1. XOLAIR [Suspect]
     Dosage: 150MG, QW4

REACTIONS (2)
  - DEEP VEIN THROMBOSIS [None]
  - LUNG NEOPLASM MALIGNANT [None]
